FAERS Safety Report 6555544-3 (Version None)
Quarter: 2010Q1

REPORT INFORMATION
  Report Type: 
  Country: None (occurrence: None)
  Receive Date: 20100125
  Receipt Date: 20100111
  Transmission Date: 20100710
  Serious: Yes (Life-Threatening)
  Sender: FDA-Public Use
  Company Number: 2010AL000292

PATIENT
  Age: 4 Week
  Sex: Female

DRUGS (1)
  1. SERTRALINE HCL [Suspect]
     Indication: DRUG EXPOSURE DURING PREGNANCY
     Dosage: 50 MG; TRMA
     Route: 061

REACTIONS (5)
  - DRUG EXPOSURE VIA BREAST MILK [None]
  - ELECTROCARDIOGRAM QT PROLONGED [None]
  - MATERNAL DRUGS AFFECTING FOETUS [None]
  - NEONATAL DISORDER [None]
  - SUPRAVENTRICULAR TACHYCARDIA [None]
